FAERS Safety Report 10025337 (Version 2)
Quarter: 2014Q1

REPORT INFORMATION
  Report Type: Spontaneous
  Country: US (occurrence: US)
  Receive Date: 20140320
  Receipt Date: 20140326
  Transmission Date: 20141002
  Serious: Yes (Death)
  Sender: FDA-Public Use
  Company Number: US-GLAXOSMITHKLINE-A1065920A

PATIENT
  Age: 78 Year
  Sex: Male

DRUGS (1)
  1. PROMACTA [Suspect]
     Indication: IMMUNE THROMBOCYTOPENIC PURPURA
     Dosage: 50MG UNKNOWN
     Route: 065
     Dates: start: 20140226

REACTIONS (3)
  - Myelodysplastic syndrome [Fatal]
  - Pneumonia aspiration [Fatal]
  - Pancytopenia [Fatal]
